FAERS Safety Report 9146686 (Version 2)
Quarter: 2013Q1

REPORT INFORMATION
  Report Type: Spontaneous
  Country: US (occurrence: US)
  Receive Date: 20130307
  Receipt Date: 20130308
  Transmission Date: 20140127
  Serious: No
  Sender: FDA-Public Use
  Company Number: US-009507513-1303USA002740

PATIENT
  Sex: Female

DRUGS (2)
  1. JANUMET [Suspect]
     Indication: BLOOD GLUCOSE INCREASED
     Dosage: 50 MG/1000 MG, QD
     Route: 048
     Dates: start: 201302
  2. JANUMET [Suspect]
     Dosage: 50 MG/1000 MG, BID
     Route: 048
     Dates: start: 201302, end: 20130305

REACTIONS (3)
  - Diarrhoea [Recovering/Resolving]
  - Diarrhoea [Recovering/Resolving]
  - Vomiting [Recovering/Resolving]
